FAERS Safety Report 15665746 (Version 5)
Quarter: 2022Q2

REPORT INFORMATION
  Report Type: Spontaneous
  Country: FR (occurrence: FR)
  Receive Date: 20181128
  Receipt Date: 20220608
  Transmission Date: 20220721
  Serious: Yes (Hospitalization, Other)
  Sender: FDA-Public Use
  Company Number: None

PATIENT
  Age: 17 Year
  Sex: Male
  Weight: 82 kg

DRUGS (17)
  1. CEFPODOXIME PROXETIL [Suspect]
     Active Substance: CEFPODOXIME PROXETIL
     Indication: Suicide attempt
     Dosage: 2000 MG, TOTAL
     Route: 048
     Dates: start: 20180701, end: 20180701
  2. ESCITALOPRAM [Suspect]
     Active Substance: ESCITALOPRAM OXALATE
     Indication: Suicide attempt
     Dosage: 140 MG, 1X/DAY
     Route: 048
     Dates: start: 20180701, end: 20180701
  3. ESCITALOPRAM [Suspect]
     Active Substance: ESCITALOPRAM OXALATE
     Indication: Suicide attempt
     Dosage: 10 MG, QD (OVERDOSE: 140 MG, 1 DAY)
     Route: 048
     Dates: start: 20180701, end: 20180701
  4. ACETAMINOPHEN [Suspect]
     Active Substance: ACETAMINOPHEN
     Indication: Suicide attempt
     Dosage: 79 G, TOTAL
     Route: 048
     Dates: start: 20180701, end: 20180701
  5. TRIMEBUTINE [Suspect]
     Active Substance: TRIMEBUTINE
     Indication: Suicide attempt
     Dosage: 14000 MG, SINGLE
     Route: 048
     Dates: start: 20180701, end: 20180701
  6. TRIMEBUTINE [Suspect]
     Active Substance: TRIMEBUTINE
     Indication: Suicide attempt
     Dosage: 14000 MG, TOTAL
     Route: 048
     Dates: start: 20180701, end: 20180701
  7. TRIMEBUTINE [Suspect]
     Active Substance: TRIMEBUTINE
     Indication: Suicide attempt
  8. PREDNISOLONE [Suspect]
     Active Substance: PREDNISOLONE
     Indication: Suicide attempt
     Dosage: 200 MG, QD (SINGLE)
     Route: 048
     Dates: start: 20180701, end: 20180701
  9. PREDNISOLONE [Suspect]
     Active Substance: PREDNISOLONE
     Indication: Suicide attempt
     Dosage: 20 MG (TOTAL)
     Route: 048
     Dates: start: 20180701, end: 20180701
  10. DIETARY SUPPLEMENT\HERBALS [Suspect]
     Active Substance: DIETARY SUPPLEMENT\HERBALS
     Indication: Suicide attempt
     Dosage: UNK
     Route: 048
  11. AZITHROMYCIN ANHYDROUS [Suspect]
     Active Substance: AZITHROMYCIN ANHYDROUS
     Indication: Suicide attempt
     Dosage: 1500 MG, QD (SINGLE)
     Route: 048
     Dates: start: 20180701, end: 20180701
  12. LOPERAMIDE OXIDE [Suspect]
     Active Substance: LOPERAMIDE OXIDE
     Indication: Suicide attempt
     Dosage: 30 MG, SINGLE
     Route: 048
     Dates: start: 20180701, end: 20180701
  13. OXAZEPAM [Suspect]
     Active Substance: OXAZEPAM
     Indication: Suicide attempt
     Dosage: 310 MG, QD (SINGLE)
     Route: 048
     Dates: start: 20180701, end: 20180701
  14. BILASTINE [Suspect]
     Active Substance: BILASTINE
     Indication: Suicide attempt
     Dosage: 120 MG, QD (SINGLE)
     Route: 048
     Dates: start: 20180701, end: 20180701
  15. AUGMENTIN [Suspect]
     Active Substance: AMOXICILLIN\CLAVULANATE POTASSIUM
     Indication: Suicide attempt
     Dosage: 6 G, QD (1X/DAY, MEDICATION ERROR OVERDOSE)
     Route: 048
     Dates: start: 20180701, end: 20180701
  16. CEFPODOXIME [Suspect]
     Active Substance: CEFPODOXIME
     Indication: Suicide attempt
     Dosage: 100 MG (2000 MG, TOTAL)
     Route: 048
     Dates: start: 20180701, end: 20180701
  17. CEFPODOXIME [Suspect]
     Active Substance: CEFPODOXIME
     Indication: Suicide attempt
     Dosage: 2000 MG, QD (SINGLE)
     Route: 048
     Dates: start: 20180701, end: 20180701

REACTIONS (11)
  - Toxicity to various agents [Recovered/Resolved]
  - Mydriasis [Recovered/Resolved]
  - Somnolence [Recovered/Resolved]
  - Malaise [Recovered/Resolved]
  - Product use issue [Unknown]
  - Intentional overdose [Unknown]
  - Vomiting [Recovered/Resolved]
  - Vomiting [Recovered/Resolved]
  - Intentional overdose [Recovered/Resolved]
  - Suicide attempt [Recovered/Resolved]
  - Product use in unapproved indication [Unknown]

NARRATIVE: CASE EVENT DATE: 20180701
